FAERS Safety Report 5709458-9 (Version None)
Quarter: 2008Q2

REPORT INFORMATION
  Report Type: 
  Country: None (occurrence: None)
  Receive Date: 20080417
  Receipt Date: 20080417
  Transmission Date: 20081010
  Serious: Yes (Other)
  Sender: FDA-Public Use
  Company Number: None

PATIENT
  Age: 75 Year
  Sex: Female
  Weight: 70.3075 kg

DRUGS (1)
  1. SIMVASTATIN [Suspect]
     Indication: BLOOD CHOLESTEROL
     Dosage: 80 MG PER DAY
     Dates: start: 20080111, end: 20080117

REACTIONS (1)
  - BLOOD GLUCOSE INCREASED [None]
